FAERS Safety Report 6843691-8 (Version None)
Quarter: 2010Q3

REPORT INFORMATION
  Report Type: 
  Country: None (occurrence: None)
  Receive Date: 20100714
  Receipt Date: 20100714
  Transmission Date: 20110219
  Serious: Yes (Other)
  Sender: FDA-Public Use
  Company Number: None

PATIENT
  Sex: Female

DRUGS (1)
  1. HUMALOG PEN [Suspect]

REACTIONS (2)
  - BLOOD GLUCOSE INCREASED [None]
  - DEVICE FAILURE [None]
